FAERS Safety Report 8282936-7 (Version None)
Quarter: 2012Q2

REPORT INFORMATION
  Report Type: 
  Country: None (occurrence: None)
  Receive Date: 20120413
  Receipt Date: 20111110
  Transmission Date: 20120825
  Serious: No
  Sender: FDA-Public Use
  Company Number: IT-CELGENEUS-083-21880-11103371

PATIENT
  Age: 63 Year
  Sex: Male
  Weight: 92 kg

DRUGS (4)
  1. DEXAMETHASONE [Concomitant]
     Indication: MULTIPLE MYELOMA
     Dosage: 40 MILLIGRAM
     Route: 065
  2. REVLIMID [Suspect]
     Indication: MULTIPLE MYELOMA
     Dosage: 25 MILLIGRAM
     Route: 048
     Dates: start: 20100811, end: 20110119
  3. VELCADE [Concomitant]
     Indication: MULTIPLE MYELOMA
     Dosage: 2.5 MILLIGRAM
     Route: 065
  4. ADRIAMYCIN PFS [Concomitant]
     Indication: MULTIPLE MYELOMA
     Dosage: 60 MILLIGRAM
     Route: 065

REACTIONS (1)
  - MULTIPLE MYELOMA [None]
